FAERS Safety Report 4463203-6 (Version None)
Quarter: 2004Q3

REPORT INFORMATION
  Report Type: 
  Country: None (occurrence: None)
  Receive Date: 20040928
  Receipt Date: 20040915
  Transmission Date: 20050211
  Serious: Yes (Hospitalization)
  Sender: FDA-Public Use
  Company Number: 2004069125

PATIENT
  Age: 62 Year
  Sex: Female
  Weight: 90.7194 kg

DRUGS (13)
  1. ZOLOFT [Suspect]
     Indication: ANXIETY
     Dosage: 150 MG (UNK, 2 IN 1 D), ORAL
     Route: 048
     Dates: end: 20040914
  2. ZOLOFT [Suspect]
     Indication: DEPRESSION
     Dosage: 150 MG (UNK, 2 IN 1 D), ORAL
     Route: 048
     Dates: end: 20040914
  3. RAMIPRIL [Suspect]
     Indication: ILL-DEFINED DISORDER
     Dosage: ORAL
     Route: 048
     Dates: start: 20040909, end: 20040910
  4. FLUTICASONE PROPIONATE [Concomitant]
  5. SALMETEROL XINAFOATE (SALMETEROL XINAFOATE) [Concomitant]
  6. IPRATROPIUM BROMIDE [Concomitant]
  7. MONTELUKAST SODIUM (MONTELUKAST SODIUM) [Concomitant]
  8. LANSOPRAZOLE [Concomitant]
  9. DILTIAZEM [Concomitant]
  10. SIMVASTATIN [Concomitant]
  11. GLIPIZIDE [Concomitant]
  12. METFORMIN HCL [Concomitant]
  13. LORAZEPAM [Concomitant]

REACTIONS (2)
  - ASTHMA [None]
  - INAPPROPRIATE ANTIDIURETIC HORMONE SECRETION [None]
